FAERS Safety Report 7570029-3 (Version None)
Quarter: 2011Q2

REPORT INFORMATION
  Report Type: 
  Country: None (occurrence: None)
  Receive Date: 20110622
  Receipt Date: 20110622
  Transmission Date: 20111010
  Serious: Yes (Other)
  Sender: FDA-Public Use
  Company Number: None

PATIENT
  Age: 56 Year
  Sex: Female
  Weight: 107.3 kg

DRUGS (1)
  1. VERSED [Suspect]
     Indication: COLONOSCOPY
     Dosage: 1 I V
     Route: 042
     Dates: start: 20110429

REACTIONS (9)
  - PAIN [None]
  - AMNESIA [None]
  - DIZZINESS [None]
  - NAUSEA [None]
  - AGITATION [None]
  - CONTUSION [None]
  - VISION BLURRED [None]
  - AGGRESSION [None]
  - DISORIENTATION [None]
